FAERS Safety Report 18170955 (Version 10)
Quarter: 2021Q2

REPORT INFORMATION
  Report Type: Spontaneous
  Country: US (occurrence: US)
  Receive Date: 20200819
  Receipt Date: 20210421
  Transmission Date: 20210717
  Serious: Yes (Other)
  Sender: FDA-Public Use
  Company Number: US-GLAXOSMITHKLINE-US2020AMR164989

PATIENT
  Sex: Female
  Weight: 72.03 kg

DRUGS (9)
  1. ZEJULA [Suspect]
     Active Substance: NIRAPARIB
     Dosage: 200 MG, QD
  2. COMPAZINE [Suspect]
     Active Substance: PROCHLORPERAZINE MALEATE
     Indication: PRODUCT USED FOR UNKNOWN INDICATION
     Dosage: UNK
  3. ZEJULA [Suspect]
     Active Substance: NIRAPARIB
     Indication: OVARIAN CANCER
     Dosage: 200 MG, QD
     Route: 048
     Dates: start: 20200811
  4. ZEJULA [Suspect]
     Active Substance: NIRAPARIB
     Dosage: 200 MG, QD
     Route: 048
  5. ZOFRAN [Suspect]
     Active Substance: ONDANSETRON HYDROCHLORIDE
     Indication: PRODUCT USED FOR UNKNOWN INDICATION
     Dosage: UNK
  6. ZEJULA [Suspect]
     Active Substance: NIRAPARIB
     Dosage: 200 MG, QD
     Route: 048
     Dates: start: 20200812
  7. ZEJULA [Suspect]
     Active Substance: NIRAPARIB
     Dosage: 200 MG, QD
     Route: 048
  8. ZEJULA [Suspect]
     Active Substance: NIRAPARIB
     Dosage: 200 MG, QD IN THE MORNING
     Route: 048
  9. ZEJULA [Suspect]
     Active Substance: NIRAPARIB
     Dosage: UNK 100 MG ONE DAY AND 200 MG THE NEXT DAY
     Route: 048
     Dates: start: 20201217

REACTIONS (25)
  - Decreased appetite [Not Recovered/Not Resolved]
  - Computerised tomogram abnormal [Unknown]
  - Product dose omission issue [Unknown]
  - Insomnia [Not Recovered/Not Resolved]
  - Drug ineffective [Unknown]
  - Blood pressure increased [Not Recovered/Not Resolved]
  - Anaemia [Unknown]
  - Product use issue [Unknown]
  - Pain [Unknown]
  - Neuropathy peripheral [Not Recovered/Not Resolved]
  - Restless legs syndrome [Unknown]
  - Nausea [Not Recovered/Not Resolved]
  - Sensation of foreign body [Unknown]
  - Illness [Unknown]
  - Fatigue [Unknown]
  - Constipation [Unknown]
  - Taste disorder [Unknown]
  - Haemoglobin decreased [Not Recovered/Not Resolved]
  - Carbohydrate antigen 125 increased [Unknown]
  - Abdominal distension [Unknown]
  - Headache [Unknown]
  - Blood creatinine increased [Not Recovered/Not Resolved]
  - Asthenia [Unknown]
  - Tardive dyskinesia [Unknown]
  - Appetite disorder [Unknown]
